FAERS Safety Report 17217285 (Version 2)
Quarter: 2019Q4

REPORT INFORMATION
  Report Type: Spontaneous
  Country: US (occurrence: US)
  Receive Date: 20191231
  Receipt Date: 20191231
  Transmission Date: 20200122
  Serious: Yes (Death, Hospitalization, Other)
  Sender: FDA-Public Use
  Company Number: US-CELGENEUS-USA-20191210149

PATIENT
  Age: 67 Year
  Sex: Female
  Weight: 83 kg

DRUGS (4)
  1. MORPHINE [Concomitant]
     Active Substance: MORPHINE
     Indication: PRODUCT USED FOR UNKNOWN INDICATION
     Route: 065
  2. GABAPENTIN. [Concomitant]
     Active Substance: GABAPENTIN
     Indication: PRODUCT USED FOR UNKNOWN INDICATION
     Route: 065
  3. DEXAMETHASONE. [Concomitant]
     Active Substance: DEXAMETHASONE
     Indication: PRODUCT USED FOR UNKNOWN INDICATION
     Route: 065
  4. POMALYST [Suspect]
     Active Substance: POMALIDOMIDE
     Indication: PLASMA CELL MYELOMA
     Dosage: 4 MILLIGRAM
     Route: 048
     Dates: start: 20191206

REACTIONS (12)
  - Respiratory disorder [Unknown]
  - Atrial fibrillation [Unknown]
  - Tumour lysis syndrome [Unknown]
  - Blood urea increased [Unknown]
  - Death [Fatal]
  - Respiratory failure [Unknown]
  - Blood uric acid increased [Unknown]
  - Plasma cell leukaemia [Unknown]
  - Renal failure [Unknown]
  - Blood potassium increased [Unknown]
  - Mental status changes [Unknown]
  - Septic shock [Unknown]

NARRATIVE: CASE EVENT DATE: 20191207
